FAERS Safety Report 8452858-7 (Version None)
Quarter: 2012Q2

REPORT INFORMATION
  Report Type: 
  Country: None (occurrence: None)
  Receive Date: 20120620
  Receipt Date: 20120430
  Transmission Date: 20120825
  Serious: No
  Sender: FDA-Public Use
  Company Number: US-VERTEX PHARMACEUTICALS INC.-AE-2012-006265

PATIENT
  Sex: Female
  Weight: 87.622 kg

DRUGS (6)
  1. INCIVEK [Suspect]
     Indication: HEPATITIS C
     Route: 048
     Dates: start: 20120202, end: 20120426
  2. RIBAVIRIN [Concomitant]
     Indication: HEPATITIS C
     Route: 048
     Dates: start: 20120202, end: 20120317
  3. PEGASYS [Concomitant]
     Indication: HEPATITIS C
     Route: 058
     Dates: start: 20120202
  4. RIBAVIRIN [Concomitant]
     Route: 048
     Dates: start: 20120426
  5. PROCRIT [Concomitant]
     Indication: ANAEMIA
     Route: 058
     Dates: start: 20120317
  6. RIBAVIRIN [Concomitant]
     Route: 048
     Dates: start: 20120317, end: 20120426

REACTIONS (3)
  - BLISTER [None]
  - RASH GENERALISED [None]
  - LYMPHADENOPATHY [None]
